FAERS Safety Report 7410337-X (Version None)
Quarter: 2011Q2

REPORT INFORMATION
  Report Type: 
  Country: None (occurrence: None)
  Receive Date: 20110412
  Receipt Date: 20110407
  Transmission Date: 20111010
  Serious: Yes (Hospitalization)
  Sender: FDA-Public Use
  Company Number: BR-ABBOTT-11P-020-0717652-00

PATIENT
  Sex: Female
  Weight: 60 kg

DRUGS (6)
  1. PANTOCAL [Concomitant]
     Indication: GASTRIC DISORDER
  2. METICORTEN [Concomitant]
     Indication: CROHN'S DISEASE
     Route: 048
  3. ACTNOROSE [Concomitant]
     Indication: BLOOD PRESSURE
     Route: 048
  4. PANTOCAL [Concomitant]
     Indication: PROPHYLAXIS
     Route: 048
     Dates: start: 20100401
  5. XOROAZA [Concomitant]
     Indication: CROHN'S DISEASE
     Route: 048
  6. HUMIRA [Suspect]
     Indication: ANKYLOSING SPONDYLITIS
     Route: 058
     Dates: start: 20110101, end: 20110317

REACTIONS (3)
  - CEREBROVASCULAR ACCIDENT [None]
  - HEMIPARESIS [None]
  - APHASIA [None]
